FAERS Safety Report 25442979 (Version 1)
Quarter: 2025Q2

REPORT INFORMATION
  Report Type: Spontaneous
  Country: US (occurrence: US)
  Receive Date: 20250617
  Receipt Date: 20250617
  Transmission Date: 20250716
  Serious: Yes (Death)
  Sender: BRAEBURN PHARMACEUTICALS
  Company Number: US-BRAEBURN PHARMACEUTICALS-US-BRA-25-000491

PATIENT
  Age: 33 Year
  Sex: Male
  Weight: 58.503 kg

DRUGS (2)
  1. BRIXADI [Suspect]
     Active Substance: BUPRENORPHINE
     Indication: Drug dependence
     Route: 065
     Dates: start: 202405, end: 202502
  2. BRIXADI [Suspect]
     Active Substance: BUPRENORPHINE
     Dosage: 64 MILLIGRAM,ADMINISTERED IN THE UPPER QUADRANT
     Route: 058
     Dates: start: 202503, end: 20250423

REACTIONS (1)
  - Completed suicide [Fatal]

NARRATIVE: CASE EVENT DATE: 20250530
